FAERS Safety Report 9038996 (Version 1)
Quarter: 2013Q1

REPORT INFORMATION
  Report Type: Report from Study
  Country: US (occurrence: US)
  Receive Date: 20130129
  Receipt Date: 20130129
  Transmission Date: 20140127
  Serious: No
  Sender: FDA-Public Use
  Company Number: US-ABBOTT-12P-163-0931174-00

PATIENT
  Age: 36 Year
  Sex: Female

DRUGS (12)
  1. HUMIRA 40 MG/0.8 ML PEN [Suspect]
     Indication: CROHN^S DISEASE
     Route: 058
     Dates: start: 20120414, end: 20120414
  2. HUMIRA 40 MG/0.8 ML PEN [Suspect]
     Route: 058
     Dates: start: 20120428
  3. CLONAZEPAM [Concomitant]
     Indication: ANXIETY
  4. BYSTOLIC [Concomitant]
     Indication: TACHYCARDIA
     Dosage: 5MG DAILY
  5. OMEPRAZOLE [Concomitant]
     Indication: GASTROOESOPHAGEAL REFLUX DISEASE
     Dosage: 20MG DAILY
  6. VITAMIN D3 [Concomitant]
     Indication: OSTEOPENIA
     Dosage: 5000 UNITS DAILY
  7. ZENCHENT [Concomitant]
     Indication: CONTRACEPTION
     Dosage: DAILY
  8. PULMICORT [Concomitant]
     Indication: PRODUCT USED FOR UNKNOWN INDICATION
     Dosage: 2 PUFFS IN MORNING + 2 PUFFS IN EVENING
     Route: 055
  9. XYMOGEN IGG 2,000 D.S. [Concomitant]
     Indication: IMMUNE SYSTEM DISORDER
  10. UNKNOWN ALLERGY SHOTS [Concomitant]
     Indication: HYPERSENSITIVITY
     Dosage: 2 SHOTS EVERY 2 WEEKS DEPENDING ON SYMPTOMS
     Route: 050
  11. PROBIOTIC [Concomitant]
     Indication: SUPPLEMENTATION THERAPY
  12. CALCIUM [Concomitant]
     Indication: PRODUCT USED FOR UNKNOWN INDICATION

REACTIONS (4)
  - Injection site bruising [Recovering/Resolving]
  - Injection site swelling [Recovered/Resolved]
  - Rash papular [Recovering/Resolving]
  - Rash macular [Recovering/Resolving]
